FAERS Safety Report 5186487-8 (Version None)
Quarter: 2006Q4

REPORT INFORMATION
  Report Type: 
  Country: None (occurrence: None)
  Receive Date: 20061220
  Receipt Date: 20060914
  Transmission Date: 20070319
  Serious: Yes (Other)
  Sender: FDA-Public Use
  Company Number: US-ELI_LILLY_AND_COMPANY-US200609003468

PATIENT
  Age: 79 Year
  Sex: Female
  Weight: 82.086 kg

DRUGS (6)
  1. DIOVAN [Concomitant]
     Indication: HYPERTENSION
     Dosage: UNK, UNK
     Dates: start: 20051018
  2. PROTONIX [Concomitant]
     Indication: GASTROOESOPHAGEAL REFLUX DISEASE
     Dosage: UNK, UNK
     Dates: start: 20060821
  3. SYNTHROID [Concomitant]
     Indication: HYPOTHYROIDISM
     Dosage: UNK, UNK
     Dates: start: 20050727
  4. TERIPARATIDE [Suspect]
     Indication: OSTEOPOROSIS
     Dosage: 20 UG, DAILY (1/D)
     Route: 058
     Dates: start: 20050218, end: 20060828
  5. CALCIUM [Concomitant]
     Indication: MINERAL SUPPLEMENTATION
     Dates: start: 19970101
  6. VITAMIN D [Concomitant]
     Indication: VITAMIN SUPPLEMENTATION
     Dates: start: 19970101

REACTIONS (7)
  - BLOOD IMMUNOGLOBULIN G INCREASED [None]
  - BLOOD IMMUNOGLOBULIN M DECREASED [None]
  - GAMMOPATHY [None]
  - HAEMATOCRIT DECREASED [None]
  - HAEMOGLOBIN DECREASED [None]
  - IMMUNOGLOBULINS INCREASED [None]
  - RED BLOOD CELL SEDIMENTATION RATE DECREASED [None]
